FAERS Safety Report 4336083-7 (Version None)
Quarter: 2004Q2

REPORT INFORMATION
  Report Type: 
  Country: None (occurrence: None)
  Receive Date: 20040406
  Receipt Date: 20040325
  Transmission Date: 20050107
  Serious: Yes (Hospitalization, Other)
  Sender: FDA-Public Use
  Company Number: 200410162BYL

PATIENT
  Age: 88 Year
  Sex: Female

DRUGS (4)
  1. ASPIRIN [Suspect]
     Indication: CEREBRAL INFARCTION
     Dosage: 100 MG, QD, ORAL
     Route: 048
     Dates: start: 20010928, end: 20040316
  2. KALLIANT [Concomitant]
  3. LENIMEC [Concomitant]
  4. CEROCRAL [Concomitant]

REACTIONS (2)
  - HAEMATEMESIS [None]
  - SHOCK [None]
